FAERS Safety Report 6430296-6 (Version None)
Quarter: 2009Q4

REPORT INFORMATION
  Report Type: 
  Country: None (occurrence: None)
  Receive Date: 20091106
  Receipt Date: 20091029
  Transmission Date: 20100525
  Serious: Yes (Hospitalization)
  Sender: FDA-Public Use
  Company Number: CH-ASTRAZENECA-2007PK00084

PATIENT
  Age: 55 Year
  Sex: Female
  Weight: 84 kg

DRUGS (3)
  1. NEXIUM [Suspect]
     Indication: PROPHYLAXIS
     Route: 048
     Dates: start: 20060914, end: 20060929
  2. IBRUPROFEN [Suspect]
     Indication: PAIN
     Route: 048
     Dates: start: 20060914, end: 20060929
  3. ZINACEF [Suspect]
     Indication: PROPHYLAXIS
     Route: 042
     Dates: start: 20060914, end: 20060914

REACTIONS (2)
  - MIXED LIVER INJURY [None]
  - RASH [None]
